FAERS Safety Report 5588557-9 (Version None)
Quarter: 2008Q1

REPORT INFORMATION
  Report Type: 
  Country: None (occurrence: None)
  Receive Date: 20080111
  Receipt Date: 20080103
  Transmission Date: 20080703
  Serious: Yes (Other)
  Sender: FDA-Public Use
  Company Number: US-ABBOTT-08P-163-0432140-00

PATIENT
  Sex: Female
  Weight: 47.216 kg

DRUGS (8)
  1. SYNTHROID [Suspect]
     Indication: THYROID DISORDER
  2. CHANTIX [Interacting]
     Indication: SMOKING CESSATION THERAPY
     Route: 048
     Dates: start: 20070801, end: 20070803
  3. CHANTIX [Interacting]
     Dates: start: 20070803, end: 20070806
  4. CHANTIX [Interacting]
     Dates: start: 20070806, end: 20070807
  5. ATENOLOL [Concomitant]
     Indication: DRUG USE FOR UNKNOWN INDICATION
  6. PRAVASTATIN SODIUM [Concomitant]
     Indication: DRUG USE FOR UNKNOWN INDICATION
  7. METAGLIP [Concomitant]
     Indication: DRUG USE FOR UNKNOWN INDICATION
  8. INSULIN [Concomitant]
     Indication: DRUG USE FOR UNKNOWN INDICATION

REACTIONS (5)
  - DRUG INTERACTION [None]
  - INSOMNIA [None]
  - RESTLESS LEGS SYNDROME [None]
  - THYROID DISORDER [None]
  - WEIGHT INCREASED [None]
